FAERS Safety Report 4764957-1 (Version None)
Quarter: 2005Q3

REPORT INFORMATION
  Report Type: 
  Country: None (occurrence: None)
  Receive Date: 20050909
  Receipt Date: 20050901
  Transmission Date: 20060218
  Serious: Yes (Hospitalization)
  Sender: FDA-Public Use
  Company Number: 2005UW13015

PATIENT
  Age: 59 Year
  Sex: Male
  Weight: 130.5 kg

DRUGS (17)
  1. CRESTOR [Suspect]
     Indication: HYPERLIPIDAEMIA
     Route: 048
  2. NESIRITIDE [Suspect]
     Indication: CARDIAC FAILURE
     Dates: start: 20050309
  3. NESIRITIDE [Suspect]
     Dates: start: 20050309
  4. FLEXERIL [Concomitant]
  5. NITROGLYCERIN [Concomitant]
  6. LORTAB [Concomitant]
  7. COLCHICINE [Concomitant]
     Indication: GOUT
  8. LASIX [Concomitant]
  9. DIGOXIN [Concomitant]
  10. VALSARTAN [Concomitant]
  11. ALDACTONE [Concomitant]
  12. INSULIN [Concomitant]
  13. GLIPIZIDE [Concomitant]
  14. AMIODARONE [Concomitant]
  15. ASPIRIN [Concomitant]
  16. COMBIVENT [Concomitant]
  17. TRITICIN [Concomitant]
     Indication: PAIN

REACTIONS (11)
  - ASTHENIA [None]
  - CHEST PAIN [None]
  - CHROMATURIA [None]
  - CONDITION AGGRAVATED [None]
  - GOUTY ARTHRITIS [None]
  - HYPOAESTHESIA [None]
  - MUSCULOSKELETAL STIFFNESS [None]
  - MYOSITIS [None]
  - NECK PAIN [None]
  - RENAL FAILURE ACUTE [None]
  - RHABDOMYOLYSIS [None]
